FAERS Safety Report 17224324 (Version 2)
Quarter: 2020Q4

REPORT INFORMATION
  Report Type: Other
  Country: CA (occurrence: CA)
  Receive Date: 20200102
  Receipt Date: 20201130
  Transmission Date: 20210113
  Serious: Yes (Other)
  Sender: FDA-Public Use
  Company Number: CA-ROCHE-2512729

PATIENT
  Age: 73 Year
  Sex: Male

DRUGS (3)
  1. HYDROMORPHONE [Suspect]
     Active Substance: HYDROMORPHONE
     Indication: ABDOMINAL PAIN
     Dosage: SHORT AND LONG-TERM RELEASE
     Route: 065
  2. XOLAIR [Suspect]
     Active Substance: OMALIZUMAB
     Indication: CHRONIC SPONTANEOUS URTICARIA
     Dosage: 150 MG, EVERY 4 WEEKS
     Route: 058
     Dates: start: 20161012
  3. MORPHINE [Suspect]
     Active Substance: MORPHINE
     Indication: PRODUCT USED FOR UNKNOWN INDICATION
     Route: 065

REACTIONS (17)
  - Ileus [Unknown]
  - Angioedema [Unknown]
  - Allergy to metals [Unknown]
  - Drug hypersensitivity [Unknown]
  - Pruritus [Unknown]
  - Illness [Unknown]
  - Impaired healing [Unknown]
  - Basal cell carcinoma [Unknown]
  - Abdominal pain [Unknown]
  - Vomiting [Unknown]
  - Rash [Not Recovered/Not Resolved]
  - Asthma [Unknown]
  - Influenza [Unknown]
  - Nausea [Unknown]
  - Allergy to chemicals [Unknown]
  - Psoriasis [Unknown]
  - Diarrhoea [Unknown]

NARRATIVE: CASE EVENT DATE: 2019
